FAERS Safety Report 8600637-X (Version None)
Quarter: 2012Q3

REPORT INFORMATION
  Report Type: 
  Country: None (occurrence: None)
  Receive Date: 20120808
  Receipt Date: 20120808
  Transmission Date: 20120928
  Serious: Yes (Other)
  Sender: FDA-Public Use
  Company Number: None

PATIENT
  Age: 75 Year
  Sex: Female
  Weight: 58.9676 kg

DRUGS (1)
  1. LEVOTHYROXINE SODIUM [Suspect]
     Dosage: 100 MCG 1 PER DAY
     Dates: start: 20030801, end: 20120701

REACTIONS (2)
  - BREAST PAIN [None]
  - MIDDLE INSOMNIA [None]
